FAERS Safety Report 9730289 (Version 3)
Quarter: 2013Q4

REPORT INFORMATION
  Report Type: Spontaneous
  Country: JP (occurrence: JP)
  Receive Date: 20131202
  Receipt Date: 20131226
  Transmission Date: 20140711
  Serious: Yes (Other)
  Sender: FDA-Public Use
  Company Number: JP-B.I. PHARMACEUTICALS,INC./RIDGEFIELD-2013-BI-31510NB

PATIENT
  Age: 72 Year
  Sex: Male
  Weight: 70 kg

DRUGS (4)
  1. TRAZENTA [Suspect]
     Indication: TYPE 2 DIABETES MELLITUS
     Dosage: 5 MG
     Route: 048
     Dates: start: 20130711, end: 20130925
  2. SUREPOST / REPAGLINIDE [Concomitant]
     Indication: TYPE 2 DIABETES MELLITUS
     Dosage: 1.5 MG
     Route: 048
     Dates: start: 20130711, end: 20130829
  3. SEIBULE / MIGLITOL [Concomitant]
     Indication: TYPE 2 DIABETES MELLITUS
     Dosage: 150 MG
     Route: 048
     Dates: start: 20130711, end: 20130823
  4. RESTAMIN / DIPHENHYDRAMINE [Concomitant]
     Dosage: /4TIMES/1DAY
     Route: 065
     Dates: start: 20130829

REACTIONS (2)
  - Drug eruption [Recovered/Resolved]
  - Flatulence [Recovered/Resolved]
